FAERS Safety Report 21532296 (Version 2)
Quarter: 2022Q4

REPORT INFORMATION
  Report Type: Spontaneous
  Country: DE (occurrence: DE)
  Receive Date: 20221101
  Receipt Date: 20221216
  Transmission Date: 20230113
  Serious: Yes (Hospitalization, Other)
  Sender: FDA-Public Use
  Company Number: DE-CHEPLA-2021004493

PATIENT
  Age: 80 Year
  Sex: Male

DRUGS (2)
  1. CLONAZEPAM [Suspect]
     Active Substance: CLONAZEPAM
     Indication: Pain
     Dosage: 1/2 TABLET OF 0.5 MG TABLET IN THE EVENING
  2. CANNABIS SATIVA SUBSP. INDICA TOP [Suspect]
     Active Substance: CANNABIS SATIVA SUBSP. INDICA TOP
     Indication: Pain

REACTIONS (10)
  - Drug dependence [Unknown]
  - Product use in unapproved indication [Unknown]
  - Intentional product use issue [Unknown]
  - Personality change [Unknown]
  - Aggression [Unknown]
  - Depression [Unknown]
  - Suicidal ideation [Unknown]
  - Rash [Unknown]
  - Bronchitis [Not Recovered/Not Resolved]
  - Pharmaceutical nomadism [Unknown]
